FAERS Safety Report 8817010 (Version 1)
Quarter: 2012Q4

REPORT INFORMATION
  Report Type: Spontaneous
  Country: US (occurrence: None)
  Receive Date: 20121003
  Receipt Date: 20121003
  Transmission Date: 20130627
  Serious: Yes (Hospitalization)
  Sender: FDA-Public Use
  Company Number: None

PATIENT
  Sex: Male
  Weight: 76.18 kg

DRUGS (2)
  1. CETUXIMAB [Suspect]
     Dosage: 510 mg
  2. OXYCODONE [Concomitant]

REACTIONS (2)
  - Stomatitis [None]
  - Pain [None]
